FAERS Safety Report 4872734-6 (Version None)
Quarter: 2006Q1

REPORT INFORMATION
  Report Type: 
  Country: None (occurrence: None)
  Receive Date: 20060103
  Receipt Date: 20051219
  Transmission Date: 20060701
  Serious: Yes (Other)
  Sender: FDA-Public Use
  Company Number: US_0511123831

PATIENT
  Age: 7 Year
  Sex: Female
  Weight: 16.8 kg

DRUGS (1)
  1. STRATTERA [Suspect]
     Dosage: 25 MG, DAILY (1/D); 18 MG, DAILY (1/D)

REACTIONS (1)
  - SUPRAVENTRICULAR TACHYCARDIA [None]
